FAERS Safety Report 4589669-9 (Version None)
Quarter: 2005Q1

REPORT INFORMATION
  Report Type: 
  Country: None (occurrence: None)
  Receive Date: 20050223
  Receipt Date: 20041111
  Transmission Date: 20050727
  Serious: Yes (Hospitalization, Other)
  Sender: FDA-Public Use
  Company Number: PHEH2004US12209

PATIENT
  Age: 73 Year
  Sex: Male
  Weight: 57 kg

DRUGS (4)
  1. LANTUS [Concomitant]
  2. NOVOLOG [Concomitant]
  3. PROZAC [Concomitant]
  4. DIOVAN HCT [Suspect]
     Indication: HYPERTENSION
     Dosage: UNK, UNK
     Route: 048
     Dates: start: 20030701, end: 20041028

REACTIONS (11)
  - BLOOD CREATININE INCREASED [None]
  - COAGULOPATHY [None]
  - COLONOSCOPY [None]
  - FATIGUE [None]
  - HYPERGLYCAEMIA [None]
  - INTERNATIONAL NORMALISED RATIO INCREASED [None]
  - LEUKOCYTOSIS [None]
  - NAUSEA [None]
  - RENAL FAILURE ACUTE [None]
  - URINARY HESITATION [None]
  - WHITE BLOOD CELL COUNT INCREASED [None]
